FAERS Safety Report 8169265 (Version 2)
Quarter: 2013Q1

REPORT INFORMATION
  Report Type: Spontaneous
  Country: MX (occurrence: MX)
  Receive Date: 20111005
  Receipt Date: 20130329
  Transmission Date: 20140127
  Serious: Yes (Death, Hospitalization)
  Sender: FDA-Public Use
  Company Number: PHHY2011MX87354

PATIENT
  Age: 66 Year
  Sex: Female

DRUGS (1)
  1. EXFORGE HCT [Suspect]
     Indication: HYPERTENSION
     Dosage: 1 DF (320 MG VALS/10MG AMLO/25 MG HYDR), DAILY
     Route: 048
     Dates: start: 20110804

REACTIONS (2)
  - Cardio-respiratory arrest [Fatal]
  - Dyspnoea [Unknown]
